FAERS Safety Report 15049025 (Version 1)
Quarter: 2018Q2

REPORT INFORMATION
  Report Type: Spontaneous
  Country: US (occurrence: US)
  Receive Date: 20180622
  Receipt Date: 20180622
  Transmission Date: 20180711
  Serious: Yes (Other)
  Sender: FDA-Public Use
  Company Number: PHHY2018US023972

PATIENT
  Sex: Female

DRUGS (6)
  1. NORTRIPTYLINE [Suspect]
     Active Substance: NORTRIPTYLINE
     Indication: PRODUCT USED FOR UNKNOWN INDICATION
     Dosage: 75 MG, UNK (ESCALATING DOSE)
     Route: 065
  2. CLONAZEPAM. [Suspect]
     Active Substance: CLONAZEPAM
     Indication: PRODUCT USED FOR UNKNOWN INDICATION
     Route: 065
  3. CALCIUM [Suspect]
     Active Substance: CALCIUM
     Indication: PRODUCT USED FOR UNKNOWN INDICATION
     Route: 065
  4. VENLAFAXINE [Suspect]
     Active Substance: VENLAFAXINE HYDROCHLORIDE
     Indication: PRODUCT USED FOR UNKNOWN INDICATION
     Dosage: 300 MG, QD
     Route: 065
  5. IBUPROFEN. [Suspect]
     Active Substance: IBUPROFEN
     Indication: PRODUCT USED FOR UNKNOWN INDICATION
     Route: 065
  6. ALBUTEROL. [Suspect]
     Active Substance: ALBUTEROL
     Indication: PRODUCT USED FOR UNKNOWN INDICATION
     Route: 065

REACTIONS (11)
  - Agitation [Recovering/Resolving]
  - Hyperreflexia [Recovering/Resolving]
  - Hyperhidrosis [Recovering/Resolving]
  - Restlessness [Recovering/Resolving]
  - Anxiety [Recovering/Resolving]
  - Mental status changes [Recovering/Resolving]
  - Serotonin syndrome [Recovering/Resolving]
  - Tachycardia [Recovering/Resolving]
  - Clonus [Recovering/Resolving]
  - Hypertonia [Recovering/Resolving]
  - Hot flush [Recovering/Resolving]
